FAERS Safety Report 10228092 (Version 3)
Quarter: 2014Q2

REPORT INFORMATION
  Report Type: Report from Study
  Country: US (occurrence: US)
  Receive Date: 20140610
  Receipt Date: 20140613
  Transmission Date: 20141212
  Serious: Yes (Hospitalization)
  Sender: FDA-Public Use
  Company Number: US-SA-2014SA052751

PATIENT
  Age: 27 Year
  Sex: Male

DRUGS (1)
  1. AUBAGIO [Suspect]
     Indication: MULTIPLE SCLEROSIS
     Route: 048
     Dates: start: 20131030

REACTIONS (6)
  - Fall [Unknown]
  - Joint injury [Unknown]
  - Tremor [Unknown]
  - Balance disorder [Unknown]
  - Multiple sclerosis relapse [Unknown]
  - Drug dose omission [Unknown]
